FAERS Safety Report 21464393 (Version 2)
Quarter: 2022Q4

REPORT INFORMATION
  Report Type: Spontaneous
  Country: US (occurrence: US)
  Receive Date: 20221017
  Receipt Date: 20221027
  Transmission Date: 20230113
  Serious: Yes (Hospitalization, Other)
  Sender: FDA-Public Use
  Company Number: US-MLMSERVICE-20220930-3832684-1

PATIENT
  Age: 72 Year
  Sex: Male

DRUGS (2)
  1. VALACYCLOVIR [Suspect]
     Active Substance: VALACYCLOVIR HYDROCHLORIDE
     Indication: Herpes zoster
     Dosage: 1 GRAM, TID, 8 HOURS
     Route: 065
  2. TRAMADOL [Concomitant]
     Active Substance: TRAMADOL
     Indication: Pain
     Dosage: 50 MILLIGRAM, TID, 8 HOURS AS NEEDED
     Route: 065

REACTIONS (3)
  - Neurotoxicity [Recovering/Resolving]
  - Incorrect dose administered [Recovered/Resolved]
  - Product prescribing error [Recovered/Resolved]
